FAERS Safety Report 7126587-6 (Version None)
Quarter: 2010Q4

REPORT INFORMATION
  Report Type: 
  Country: None (occurrence: None)
  Receive Date: 20101129
  Receipt Date: 20101129
  Transmission Date: 20110411
  Serious: Yes (Hospitalization)
  Sender: FDA-Public Use
  Company Number: SI-MYLANLABS-2010S1015759

PATIENT
  Age: 82 Year
  Sex: Female

DRUGS (3)
  1. DICLOFENAC SODIUM [Suspect]
     Indication: BACK PAIN
     Dosage: DOSAGE STATED AS 2 X 50MG
     Route: 065
  2. ENALAPRIL MALEATE [Interacting]
     Indication: HYPERTENSION
     Dosage: DOSAGE STATED AS 2 X 20MG
     Route: 065
  3. METFORMIN [Concomitant]
     Indication: DIABETES MELLITUS
     Dosage: DOSAGE STATED AS 3 X 850MG.
     Route: 065

REACTIONS (3)
  - DRUG INTERACTION [None]
  - HYPERKALAEMIA [None]
  - METABOLIC ACIDOSIS [None]
